FAERS Safety Report 8575524-6 (Version None)
Quarter: 2012Q3

REPORT INFORMATION
  Report Type: 
  Country: None (occurrence: None)
  Receive Date: 20120807
  Receipt Date: 20120801
  Transmission Date: 20120928
  Serious: Yes (Hospitalization, Other)
  Sender: FDA-Public Use
  Company Number: PHHY2012KE067050

PATIENT
  Age: 15 Year
  Sex: Female

DRUGS (4)
  1. TACROLIMUS [Concomitant]
     Dosage: UNK UKN, UNK
  2. MYFORTIC [Suspect]
     Indication: IMMUNOSUPPRESSION
     Dosage: 420 MG/M2, (720 MG)
     Route: 048
     Dates: start: 20120305, end: 20120801
  3. PREDNISOLONE [Concomitant]
     Dosage: UNK UKN, UNK
  4. AMLODIPINE [Concomitant]
     Dosage: UNK UKN, UNK

REACTIONS (4)
  - DIALYSIS [None]
  - SHOCK [None]
  - DIARRHOEA [None]
  - RENAL TUBULAR NECROSIS [None]
